FAERS Safety Report 7436147-5 (Version None)
Quarter: 2011Q2

REPORT INFORMATION
  Report Type: 
  Country: None (occurrence: None)
  Receive Date: 20110425
  Receipt Date: 20110411
  Transmission Date: 20111010
  Serious: Yes (Hospitalization, Other)
  Sender: FDA-Public Use
  Company Number: US-BAYER-2011-018494

PATIENT
  Age: 82 Year
  Sex: Male

DRUGS (15)
  1. SIMVASTATIN [Concomitant]
  2. NITROGLYCERIN [Concomitant]
  3. LIDOCAINE [Concomitant]
  4. APLXABAN OR PLACEBO [Suspect]
     Indication: THROMBOSIS PROPHYLAXIS
     Dosage: 10 MG, QD
     Route: 048
     Dates: start: 20100108, end: 20100119
  5. COUMADIN [Suspect]
     Indication: THROMBOSIS PROPHYLAXIS
     Dosage: UNK
     Dates: start: 20100924, end: 20110103
  6. LASIX [Concomitant]
  7. METOLAZONE [Concomitant]
  8. ASPIRIN [Suspect]
  9. DECITABINE [Concomitant]
     Indication: MYELODYSPLASTIC SYNDROME
     Dosage: UNK
     Dates: start: 20100301
  10. ACETYLSALICYLIC ACID SRT [Suspect]
     Dosage: DAILY DOSE 81 MG
  11. ACETYLSALICYLIC ACID SRT [Suspect]
     Dosage: DAILY DOSE 81 MG
  12. COLCHICINE [Concomitant]
  13. WARFARIN SODIUM [Suspect]
     Indication: THROMBOSIS PROPHYLAXIS
     Dosage: UNK
     Route: 048
     Dates: start: 20100108, end: 20100118
  14. PROZAC [Concomitant]
  15. LISINOPRIL [Concomitant]

REACTIONS (2)
  - PANCYTOPENIA [None]
  - GASTROINTESTINAL HAEMORRHAGE [None]
